FAERS Safety Report 9657321 (Version 1)
Quarter: 2013Q4

REPORT INFORMATION
  Report Type: Spontaneous
  Country: US (occurrence: US)
  Receive Date: 20131030
  Receipt Date: 20131030
  Transmission Date: 20140711
  Serious: Yes (Hospitalization)
  Sender: FDA-Public Use
  Company Number: US-GLAXOSMITHKLINE-A1047160A

PATIENT
  Age: 42 Year
  Sex: Female

DRUGS (2)
  1. POTIGA [Suspect]
     Indication: CONVULSION
     Dosage: 500MG PER DAY
     Route: 048
  2. TOPIRAMATE [Concomitant]

REACTIONS (1)
  - Urinary tract infection [Unknown]
